FAERS Safety Report 4328047-4 (Version None)
Quarter: 2004Q1

REPORT INFORMATION
  Report Type: 
  Country: None (occurrence: None)
  Receive Date: 20040325
  Receipt Date: 20040309
  Transmission Date: 20041129
  Serious: Yes (Hospitalization)
  Sender: FDA-Public Use
  Company Number: 193881

PATIENT
  Age: 49 Year
  Sex: Female
  Weight: 68.0396 kg

DRUGS (8)
  1. AVONEX [Suspect]
     Indication: MULTIPLE SCLEROSIS
     Dosage: 30 MCG QW IM
     Route: 030
     Dates: start: 19960101, end: 20031221
  2. PREDNISONE [Concomitant]
  3. LIPITOR [Concomitant]
  4. DIAMOX [Concomitant]
  5. MIDAMOR [Concomitant]
  6. AMANTADINE HCL [Concomitant]
  7. TEGRETOL [Concomitant]
  8. DEPAKOTE [Concomitant]

REACTIONS (6)
  - BRAIN ABSCESS [None]
  - CONVULSION [None]
  - DEHYDRATION [None]
  - DIARRHOEA [None]
  - ENCEPHALITIS [None]
  - MENINGITIS LISTERIA [None]
